FAERS Safety Report 5190077-0 (Version None)
Quarter: 2006Q4

REPORT INFORMATION
  Report Type: 
  Country: None (occurrence: None)
  Receive Date: 20061222
  Receipt Date: 20041229
  Transmission Date: 20070319
  Serious: Yes (Death, Hospitalization)
  Sender: FDA-Public Use
  Company Number: 200510000JP

PATIENT
  Age: 80 Year
  Sex: Male

DRUGS (23)
  1. ARAVA [Suspect]
     Indication: RHEUMATOID ARTHRITIS
     Route: 048
     Dates: start: 20040726, end: 20041227
  2. QUESTRAN [Suspect]
     Indication: DRUG DETOXIFICATION
     Route: 048
     Dates: start: 20041229, end: 20050104
  3. RHEUMATREX                         /00113801/ [Concomitant]
     Indication: RHEUMATOID ARTHRITIS
     Dosage: DOSE: 4MG/WEEK
     Route: 048
     Dates: start: 20030912, end: 20040725
  4. MEDICON [Concomitant]
     Indication: BRONCHITIS
     Route: 048
     Dates: start: 20040616, end: 20040620
  5. FLOMOX [Concomitant]
     Indication: BRONCHITIS
     Route: 048
     Dates: start: 20040616, end: 20040616
  6. BENET [Concomitant]
     Indication: OSTEOPOROSIS
     Route: 048
     Dates: start: 20040823
  7. VOLTAREN [Concomitant]
     Indication: RHEUMATOID ARTHRITIS
     Route: 048
     Dates: start: 19970228, end: 20041227
  8. CYTOTEC [Concomitant]
     Indication: GASTRIC ULCER
     Route: 048
     Dates: start: 19990901, end: 20041227
  9. CYTOTEC [Concomitant]
     Indication: PROPHYLAXIS
     Route: 048
     Dates: start: 19990901, end: 20041227
  10. ALTAT [Concomitant]
     Indication: GASTRIC ULCER
     Route: 048
     Dates: start: 20001101, end: 20041227
  11. ALTAT [Concomitant]
     Indication: PROPHYLAXIS
     Route: 048
     Dates: start: 20001101, end: 20041227
  12. SELECTOL [Concomitant]
     Indication: HYPERTENSION
     Route: 048
     Dates: end: 20041227
  13. ALDOMET                            /00000101/ [Concomitant]
     Indication: HYPERTENSION
     Route: 048
     Dates: end: 20041227
  14. MICARDIS [Concomitant]
     Indication: HYPERTENSION
     Route: 048
     Dates: end: 20041227
  15. ATELEC [Concomitant]
     Indication: HYPERTENSION
     Route: 048
     Dates: end: 20041227
  16. LASIX [Concomitant]
     Indication: HYPERTENSION
     Route: 048
     Dates: end: 20041227
  17. CARBADOGEN [Concomitant]
     Indication: HYPERTENSION
     Route: 048
     Dates: start: 20021202, end: 20041227
  18. MAGMITT [Concomitant]
     Indication: CONSTIPATION
     Route: 048
     Dates: end: 20041227
  19. LAC B [Concomitant]
     Indication: CONSTIPATION
     Route: 048
     Dates: end: 20041227
  20. SERMION [Concomitant]
     Indication: DIZZINESS
     Dosage: DOSE: 3 TABLETS
     Route: 048
     Dates: start: 20030513, end: 20041227
  21. PREDNISOLONE [Concomitant]
     Indication: RHEUMATOID ARTHRITIS
     Route: 048
     Dates: start: 19960517, end: 20041227
  22. VOLTAREN [Concomitant]
     Indication: RHEUMATOID ARTHRITIS
     Route: 054
     Dates: start: 19980718, end: 20041227
  23. FLUITRAN [Concomitant]
     Indication: HYPERTENSION
     Route: 048
     Dates: start: 20030926, end: 20041227

REACTIONS (3)
  - CARDIO-RESPIRATORY ARREST [None]
  - OBSTRUCTIVE AIRWAYS DISORDER [None]
  - PNEUMONIA PNEUMOCOCCAL [None]
